FAERS Safety Report 22193842 (Version 1)
Quarter: 2023Q2

REPORT INFORMATION
  Report Type: Spontaneous
  Country: US (occurrence: US)
  Receive Date: 20230410
  Receipt Date: 20230410
  Transmission Date: 20230721
  Serious: No
  Sender: FDA-Public Use
  Company Number: US-BRISTOL-MYERS SQUIBB COMPANY-2023-051123

PATIENT
  Sex: Female

DRUGS (1)
  1. SOTYKTU [Suspect]
     Active Substance: DEUCRAVACITINIB
     Indication: Product used for unknown indication
     Dates: start: 202301

REACTIONS (3)
  - Herpes virus infection [Unknown]
  - Acne [Unknown]
  - Swelling face [Unknown]
